FAERS Safety Report 9294508 (Version 1)
Quarter: 2013Q2

REPORT INFORMATION
  Report Type: Spontaneous
  Country: US (occurrence: US)
  Receive Date: 20130517
  Receipt Date: 20130517
  Transmission Date: 20140414
  Serious: Yes (Hospitalization, Other)
  Sender: FDA-Public Use
  Company Number: US-AMGEN-USASP2013034405

PATIENT
  Sex: 0

DRUGS (1)
  1. PROCRIT [Suspect]
     Indication: PRODUCT USED FOR UNKNOWN INDICATION
     Dosage: UNK, 4 INJECTIONS

REACTIONS (8)
  - Abdominal discomfort [Unknown]
  - Q fever [Unknown]
  - Aortic valve repair [Unknown]
  - Asthenia [Unknown]
  - Fatigue [Unknown]
  - Glycosylated haemoglobin decreased [Unknown]
  - Haemoglobin decreased [Unknown]
  - Weight decreased [Unknown]
